FAERS Safety Report 5788265-5 (Version None)
Quarter: 2008Q2

REPORT INFORMATION
  Report Type: 
  Country: None (occurrence: None)
  Receive Date: 20080625
  Receipt Date: 20080613
  Transmission Date: 20081010
  Serious: Yes (Disabling)
  Sender: FDA-Public Use
  Company Number: JP-PFIZER INC-2008045999

PATIENT
  Sex: Female
  Weight: 58 kg

DRUGS (9)
  1. REVATIO [Suspect]
     Indication: PULMONARY HYPERTENSION
     Route: 048
  2. TRACLEER [Suspect]
     Route: 048
     Dates: start: 20080410, end: 20080421
  3. TRACLEER [Suspect]
     Route: 048
     Dates: start: 20080421, end: 20080523
  4. FAMOTIDINE [Concomitant]
     Indication: GASTROINTESTINAL DISORDER
     Route: 048
  5. CYANOCOBALAMIN [Concomitant]
     Indication: MEDIAN NERVE INJURY
     Route: 048
  6. KALGUT [Concomitant]
     Indication: CARDIAC FAILURE
     Route: 048
  7. SELBEX [Concomitant]
     Route: 048
  8. DORNER [Concomitant]
     Route: 048
  9. WARFARIN SODIUM [Concomitant]
     Indication: PULMONARY EMBOLISM
     Route: 048

REACTIONS (3)
  - ALANINE AMINOTRANSFERASE INCREASED [None]
  - ASPARTATE AMINOTRANSFERASE INCREASED [None]
  - BLOOD LACTATE DEHYDROGENASE INCREASED [None]
